FAERS Safety Report 6172597-5 (Version None)
Quarter: 2009Q2

REPORT INFORMATION
  Report Type: 
  Country: None (occurrence: None)
  Receive Date: 20090428
  Receipt Date: 20090416
  Transmission Date: 20091009
  Serious: Yes (Death)
  Sender: FDA-Public Use
  Company Number: 2009S1000080

PATIENT
  Age: 50 Year
  Sex: Male
  Weight: 76 kg

DRUGS (3)
  1. CUBICIN [Suspect]
     Indication: BACTERAEMIA
     Dosage: 6 MG; KG; Q24H
     Dates: start: 20081230, end: 20090112
  2. CUBICIN [Suspect]
     Indication: ENDOCARDITIS STAPHYLOCOCCAL
     Dosage: 6 MG; KG; Q24H
     Dates: start: 20081230, end: 20090112
  3. VANCOMYCIN HCL [Concomitant]

REACTIONS (1)
  - DRUG RESISTANCE [None]
